FAERS Safety Report 14233556 (Version 4)
Quarter: 2018Q2

REPORT INFORMATION
  Report Type: Spontaneous
  Country: JP (occurrence: JP)
  Receive Date: 20171129
  Receipt Date: 20180606
  Transmission Date: 20180711
  Serious: Yes (Hospitalization)
  Sender: FDA-Public Use
  Company Number: JP-UCBSA-2017046848

PATIENT
  Age: 80 Year
  Sex: Male

DRUGS (1)
  1. NEUPRO [Suspect]
     Active Substance: ROTIGOTINE
     Indication: PRODUCT USED FOR UNKNOWN INDICATION
     Dosage: 2 MG DAILY AND 1 MG DAILY RESPECTIVELY
     Route: 062

REACTIONS (2)
  - Inappropriate schedule of drug administration [Unknown]
  - Hospitalisation [Unknown]
